FAERS Safety Report 25144902 (Version 1)
Quarter: 2025Q2

REPORT INFORMATION
  Report Type: Spontaneous
  Country: US (occurrence: None)
  Receive Date: 20250331
  Receipt Date: 20250331
  Transmission Date: 20250717
  Serious: Yes (Other)
  Sender: FDA-CTU
  Company Number: None

PATIENT
  Age: 64 Year
  Sex: Female
  Weight: 84.6 kg

DRUGS (9)
  1. TIRZEPATIDE [Suspect]
     Active Substance: TIRZEPATIDE
     Indication: Weight decreased
     Route: 058
     Dates: start: 20250308, end: 20250322
  2. DUPIXENT [Concomitant]
     Active Substance: DUPILUMAB
  3. REPATHA [Concomitant]
     Active Substance: EVOLOCUMAB
  4. Eliquest [Concomitant]
  5. ZETIA [Concomitant]
     Active Substance: EZETIMIBE
  6. MINOXIDIL [Concomitant]
     Active Substance: MINOXIDIL
  7. SYNTHROID [Concomitant]
     Active Substance: LEVOTHYROXINE SODIUM
  8. liothyroxine [Concomitant]
  9. TYLENOL [Concomitant]
     Active Substance: ACETAMINOPHEN

REACTIONS (5)
  - Product deposit [None]
  - Injection site swelling [None]
  - Injection site pain [None]
  - Injection site erythema [None]
  - Injection site nodule [None]

NARRATIVE: CASE EVENT DATE: 20250323
